FAERS Safety Report 18010270 (Version 1)
Quarter: 2020Q3

REPORT INFORMATION
  Report Type: Report from Study
  Country: HN (occurrence: HN)
  Receive Date: 20200710
  Receipt Date: 20200710
  Transmission Date: 20201103
  Serious: Yes (Hospitalization)
  Sender: FDA-Public Use
  Company Number: NVSC2020HN194629

PATIENT
  Age: 74 Year
  Sex: Male

DRUGS (2)
  1. EXFORGE HCT [Suspect]
     Active Substance: AMLODIPINE BESYLATE\HYDROCHLOROTHIAZIDE\VALSARTAN
     Dosage: 1 DF(AMLODIPINE 5MG, VALSARTAN 160MG, HYDROCHLOROTHIAZIDE 25MG)
     Route: 065
     Dates: start: 202001
  2. EXFORGE HCT [Suspect]
     Active Substance: AMLODIPINE BESYLATE\HYDROCHLOROTHIAZIDE\VALSARTAN
     Indication: PRODUCT USED FOR UNKNOWN INDICATION
     Dosage: 1 DF (AMLODIPINE 10MG, VALSARTAN 320MG, HYDROCHLOROTHIAZIDE 25MG) (STARTED SINCE 2 OR 3 YEARS AGO)
     Route: 065
     Dates: end: 202001

REACTIONS (1)
  - Fall [Unknown]
